FAERS Safety Report 6213339-4 (Version None)
Quarter: 2009Q2

REPORT INFORMATION
  Report Type: 
  Country: None (occurrence: None)
  Receive Date: 20090601
  Receipt Date: 20090414
  Transmission Date: 20091009
  Serious: Yes (Hospitalization, Other)
  Sender: FDA-Public Use
  Company Number: JPI-P-006914

PATIENT
  Age: 83 Year
  Sex: Male

DRUGS (2)
  1. LUVOX [Suspect]
     Indication: DEPRESSED MOOD
     Dosage: ORAL
     Route: 048
     Dates: start: 20060101
  2. ISONIAZID [Suspect]
     Indication: TUBERCULOUS PLEURISY
     Dosage: ORAL
     Route: 048

REACTIONS (5)
  - ANOREXIA [None]
  - DRUG INTERACTION [None]
  - FATIGUE [None]
  - INAPPROPRIATE ANTIDIURETIC HORMONE SECRETION [None]
  - TUBERCULOUS PLEURISY [None]
